FAERS Safety Report 7967683-0 (Version None)
Quarter: 2011Q4

REPORT INFORMATION
  Report Type: 
  Country: None (occurrence: None)
  Receive Date: 20111207
  Receipt Date: 20111112
  Transmission Date: 20120403
  Serious: Yes (Death, Hospitalization, Congenital Anomaly, Other)
  Sender: FDA-Public Use
  Company Number: 1000025980

PATIENT
  Sex: Male
  Weight: 3.67 kg

DRUGS (1)
  1. CITALOPRAM HYDROBROMIDE [Suspect]
     Dosage: 10 MG (10 MG, 1 IN 1 D) TRANSPLACENTAL
     Route: 064
     Dates: end: 19980910

REACTIONS (4)
  - DEATH NEONATAL [None]
  - VENTRICULAR HYPOPLASIA [None]
  - HEART DISEASE CONGENITAL [None]
  - MATERNAL DRUGS AFFECTING FOETUS [None]
